FAERS Safety Report 26216268 (Version 1)
Quarter: 2025Q4

REPORT INFORMATION
  Report Type: Spontaneous
  Country: CA (occurrence: CA)
  Receive Date: 20251231
  Receipt Date: 20251231
  Transmission Date: 20260118
  Serious: Yes (Other)
  Sender: ROCHE
  Company Number: CA-ROCHE-10000469780

PATIENT
  Sex: Female

DRUGS (5)
  1. TRASTUZUMAB [Interacting]
     Active Substance: TRASTUZUMAB
     Indication: HER2 positive breast cancer
     Dosage: FREQUENCY CYCLICAL
  2. DENOSUMAB [Interacting]
     Active Substance: DENOSUMAB
     Indication: HER2 positive breast cancer
     Route: 058
  3. LETROZOLE [Concomitant]
     Active Substance: LETROZOLE
  4. PACLITAXEL [Concomitant]
     Active Substance: PACLITAXEL
     Dosage: THERAPY DURATION 4.0 MONTH
     Route: 042
  5. PAMIDRONATE DISODIUM [Concomitant]
     Active Substance: PAMIDRONATE DISODIUM
     Dosage: THERAPY DURATION  153.0 DAYS

REACTIONS (2)
  - Ejection fraction decreased [Recovered/Resolved]
  - Potentiating drug interaction [Unknown]
